FAERS Safety Report 5383870-2 (Version None)
Quarter: 2007Q3

REPORT INFORMATION
  Report Type: 
  Country: None (occurrence: None)
  Receive Date: 20070711
  Receipt Date: 20070702
  Transmission Date: 20080115
  Serious: Yes (Hospitalization)
  Sender: FDA-Public Use
  Company Number: US-JNJFOC-20070700790

PATIENT
  Sex: Female
  Weight: 79.38 kg

DRUGS (5)
  1. DURAGESIC-100 [Suspect]
     Indication: PAIN
     Route: 062
  2. EFFEXOR [Concomitant]
     Indication: DEPRESSION
     Route: 048
  3. INDERAL [Concomitant]
     Indication: PAIN
     Route: 048
  4. XANAX [Concomitant]
     Indication: ANXIETY
     Route: 048
  5. OXYCONTIN [Concomitant]
     Indication: PAIN
     Route: 048

REACTIONS (3)
  - INAPPROPRIATE SCHEDULE OF DRUG ADMINISTRATION [None]
  - JAW FRACTURE [None]
  - ROAD TRAFFIC ACCIDENT [None]
